FAERS Safety Report 7683239-1 (Version None)
Quarter: 2011Q3

REPORT INFORMATION
  Report Type: 
  Country: None (occurrence: None)
  Receive Date: 20110815
  Receipt Date: 20110805
  Transmission Date: 20111222
  Serious: Yes (Hospitalization, Other)
  Sender: FDA-Public Use
  Company Number: BE-ASTRAZENECA-2011SE28018

PATIENT
  Age: 86 Year
  Sex: Female
  Weight: 50 kg

DRUGS (3)
  1. XYLOCAINE [Suspect]
     Indication: BACK PAIN
     Route: 008
     Dates: start: 20090915, end: 20090915
  2. CORTICOSTEROID [Suspect]
     Route: 013
  3. DEPO-MEDROL [Concomitant]
     Route: 008

REACTIONS (1)
  - OPISTHOTONUS [None]
